FAERS Safety Report 8684641 (Version 5)
Quarter: 2013Q1

REPORT INFORMATION
  Report Type: Spontaneous
  Country: US (occurrence: US)
  Receive Date: 20121029
  Receipt Date: 20130305
  Transmission Date: 20140127
  Serious: Yes (Hospitalization, Other)
  Sender: FDA-Public Use
  Company Number: US-009507513-1207USA004226

PATIENT
  Sex: Female
  Weight: 58.5 kg

DRUGS (8)
  1. FOSAMAX [Suspect]
     Indication: OSTEOPOROSIS
     Dosage: 70 MG, QW
     Route: 048
     Dates: start: 20000925, end: 20081221
  2. FOSAMAX [Suspect]
     Indication: OSTEOPENIA
  3. ALENDRONATE SODIUM [Suspect]
     Indication: OSTEOPOROSIS
     Dosage: 70 MG, QW
     Route: 048
     Dates: start: 20081221, end: 20100727
  4. ALENDRONATE SODIUM [Suspect]
     Indication: OSTEOPENIA
  5. CALCIUM (UNSPECIFIED) (+) VITAMIN D (UNSPECIFIED) [Concomitant]
     Dosage: UNK
     Dates: start: 1990
  6. CENTRUM (MINERALS (UNSPECIFIED) (+) VITAMINS (UNSPECIFIED)) [Concomitant]
     Dosage: UNK
     Dates: start: 1990
  7. VITAMIN D (UNSPECIFIED) [Concomitant]
  8. PREMARIN [Concomitant]

REACTIONS (38)
  - Femur fracture [Recovered/Resolved]
  - Closed fracture manipulation [Recovered/Resolved]
  - Laceration [Unknown]
  - Femur fracture [Unknown]
  - Haemorrhagic anaemia [Unknown]
  - Hypokalaemia [Unknown]
  - Tibia fracture [Unknown]
  - Internal fixation of fracture [Unknown]
  - Fall [Unknown]
  - Low turnover osteopathy [Unknown]
  - Fibula fracture [Unknown]
  - Foot fracture [Recovering/Resolving]
  - Hypothyroidism [Unknown]
  - Adverse event [Unknown]
  - Dermatitis [Not Recovered/Not Resolved]
  - Bronchitis [Unknown]
  - Vulvovaginal mycotic infection [Not Recovered/Not Resolved]
  - Cystocele [Not Recovered/Not Resolved]
  - Foot fracture [Unknown]
  - Arthritis [Not Recovered/Not Resolved]
  - Cataract operation [Unknown]
  - Hyperlipidaemia [Unknown]
  - Osteoarthritis [Unknown]
  - Breast cyst [Unknown]
  - Impaired healing [Unknown]
  - Foot fracture [Not Recovered/Not Resolved]
  - Impaired healing [Unknown]
  - Radiculopathy [Unknown]
  - Oropharyngeal pain [Unknown]
  - Fatigue [Unknown]
  - Stomatitis [Unknown]
  - Pain in extremity [Unknown]
  - Drug hypersensitivity [Unknown]
  - Back pain [Not Recovered/Not Resolved]
  - Malaise [Unknown]
  - Blood calcium decreased [Unknown]
  - Rash [Unknown]
  - Arthralgia [Unknown]
